FAERS Safety Report 16641311 (Version 2)
Quarter: 2019Q3

REPORT INFORMATION
  Report Type: Spontaneous
  Country: US (occurrence: US)
  Receive Date: 20190729
  Receipt Date: 20190805
  Transmission Date: 20191004
  Serious: Yes (Other)
  Sender: FDA-Public Use
  Company Number: US-GILEAD-2019-0420183

PATIENT
  Sex: Male

DRUGS (7)
  1. TRUVADA [Suspect]
     Active Substance: EMTRICITABINE\TENOFOVIR DISOPROXIL FUMARATE
     Indication: HIV INFECTION
     Dosage: 200-300 MG, QD
     Route: 048
     Dates: start: 20151012, end: 20161107
  2. ACETAMINOPHEN. [Concomitant]
     Active Substance: ACETAMINOPHEN
  3. PANTOPRAZOLE [Concomitant]
     Active Substance: PANTOPRAZOLE
  4. FLUCONAZOLE. [Concomitant]
     Active Substance: FLUCONAZOLE
  5. SULFAMETHOXAZOLE AND TRIMETHOPRIM [Concomitant]
     Active Substance: SULFAMETHOXAZOLE\TRIMETHOPRIM
  6. RITONAVIR. [Concomitant]
     Active Substance: RITONAVIR
  7. DARUNAVIR [Concomitant]
     Active Substance: DARUNAVIR

REACTIONS (6)
  - Neoplasm malignant [Unknown]
  - Bone disorder [Unknown]
  - Fluid intake reduced [Unknown]
  - Tooth disorder [Unknown]
  - Renal disorder [Recovering/Resolving]
  - Renal impairment [Recovering/Resolving]
